FAERS Safety Report 5854303-4 (Version None)
Quarter: 2008Q3

REPORT INFORMATION
  Report Type: 
  Country: None (occurrence: None)
  Receive Date: 20080822
  Receipt Date: 20080818
  Transmission Date: 20090109
  Serious: Yes (Death, Hospitalization)
  Sender: FDA-Public Use
  Company Number: US-ABBOTT-08P-163-0471612-00

PATIENT
  Sex: Male
  Weight: 72.186 kg

DRUGS (3)
  1. RITONAVIR SOFT GELATIN CAPSULES [Suspect]
     Indication: HIV INFECTION
     Route: 048
     Dates: start: 20071029
  2. DARUNAVIR [Concomitant]
     Indication: HIV INFECTION
     Route: 048
     Dates: start: 20071029
  3. TMC-114 [Concomitant]
     Indication: HIV INFECTION
     Route: 048
     Dates: start: 20071029

REACTIONS (1)
  - PNEUMONIA [None]
